FAERS Safety Report 10301817 (Version 2)
Quarter: 2014Q1

REPORT INFORMATION
  Report Type: Spontaneous
  Country: US (occurrence: None)
  Receive Date: 20120817
  Receipt Date: 20130815
  Transmission Date: 20141002
  Serious: Yes (Other)
  Sender: FDA-Public Use
  Company Number: ADR-2012-00662

PATIENT
  Sex: Male

DRUGS (2)
  1. BACLOFEN [Suspect]
     Indication: MULTIPLE SCLEROSIS
  2. BACLOFEN [Suspect]
     Indication: MUSCLE SPASTICITY

REACTIONS (6)
  - Muscle spasticity [None]
  - Movement disorder [None]
  - Musculoskeletal stiffness [None]
  - Hypokinesia [None]
  - Muscle spasms [None]
  - Muscular weakness [None]
